FAERS Safety Report 20708399 (Version 2)
Quarter: 2022Q2

REPORT INFORMATION
  Report Type: Spontaneous
  Country: US (occurrence: US)
  Receive Date: 20220414
  Receipt Date: 20220516
  Transmission Date: 20220720
  Serious: No
  Sender: FDA-Public Use
  Company Number: US-TAKEDA-2022TUS024723

PATIENT
  Sex: Male

DRUGS (3)
  1. LIVTENCITY [Suspect]
     Active Substance: MARIBAVIR
     Indication: Cytomegalovirus infection
     Dosage: 800 MILLIGRAM, QD
     Route: 065
  2. LIVTENCITY [Suspect]
     Active Substance: MARIBAVIR
     Indication: Renal disorder
     Dosage: 200 MILLIGRAM, BID
     Route: 048
     Dates: start: 20220317
  3. LIVTENCITY [Suspect]
     Active Substance: MARIBAVIR
     Indication: Cytomegalovirus viraemia
     Dosage: 400 MILLIGRAM, BID
     Route: 048
     Dates: start: 20220317

REACTIONS (1)
  - Blood glucose increased [Unknown]
